FAERS Safety Report 9189350 (Version 1)
Quarter: 2013Q1

REPORT INFORMATION
  Report Type: Other
  Country: US (occurrence: US)
  Receive Date: 20130326
  Receipt Date: 20130326
  Transmission Date: 20140127
  Serious: Yes (Other)
  Sender: FDA-Public Use
  Company Number: US-RANBAXY-2013US-66567

PATIENT
  Sex: Female
  Weight: 77.1 kg

DRUGS (7)
  1. AMLODIPINE [Suspect]
     Indication: PRODUCT USED FOR UNKNOWN INDICATION
     Dosage: 5 MG , 2 IN 1 DAY
     Route: 065
     Dates: start: 1998
  2. ATENOLOL [Suspect]
     Indication: HYPERTENSION
     Dosage: UNK
     Route: 065
     Dates: end: 2006
  3. PROTONIX [Suspect]
     Indication: ASTHMA
     Dosage: 40 MG, QD
     Route: 048
     Dates: end: 2008
  4. PROTONIX [Suspect]
     Indication: ASTHMA
     Dosage: 40 MG, BID
     Route: 048
     Dates: start: 2008
  5. SYNTHROID [Suspect]
     Indication: PRODUCT USED FOR UNKNOWN INDICATION
     Dosage: UNK
     Route: 065
     Dates: start: 1995
  6. COREG [Suspect]
     Indication: PRODUCT USED FOR UNKNOWN INDICATION
     Dosage: 12.5 MG, BID
     Route: 065
     Dates: start: 2003
  7. ANAGRELIDE [Suspect]
     Indication: THROMBOSIS
     Dosage: UNK
     Route: 065

REACTIONS (5)
  - Myocardial infarction [Unknown]
  - Hypotension [Recovered/Resolved]
  - Thrombosis [Not Recovered/Not Resolved]
  - Erosive oesophagitis [Not Recovered/Not Resolved]
  - Off label use [Unknown]
